FAERS Safety Report 4624986-5 (Version None)
Quarter: 2005Q2

REPORT INFORMATION
  Report Type: 
  Country: None (occurrence: None)
  Receive Date: 20050325
  Receipt Date: 20050127
  Transmission Date: 20051028
  Serious: No
  Sender: FDA-Public Use
  Company Number: USA050189350

PATIENT
  Age: 63 Year
  Sex: Female

DRUGS (6)
  1. FORTEO [Suspect]
     Indication: OSTEOPOROSIS
     Dosage: 20 UG
     Dates: start: 20041201
  2. EVISTA [Suspect]
     Dates: end: 20041130
  3. CALTRATE [Concomitant]
  4. MAGNESIUM [Concomitant]
  5. OSTEOEZE BONE + JOINT CARE [Concomitant]
  6. DILANTIN [Concomitant]

REACTIONS (4)
  - BONE DENSITY DECREASED [None]
  - INJECTION SITE HAEMORRHAGE [None]
  - JOINT CREPITATION [None]
  - PAIN IN EXTREMITY [None]
